FAERS Safety Report 10393716 (Version 2)
Quarter: 2014Q3

REPORT INFORMATION
  Report Type: Spontaneous
  Country: BR (occurrence: BR)
  Receive Date: 20140819
  Receipt Date: 20140922
  Transmission Date: 20150326
  Serious: Yes (Other)
  Sender: FDA-Public Use
  Company Number: BR-PFIZER INC-2014226878

PATIENT
  Age: 82 Year
  Sex: Male
  Weight: 63 kg

DRUGS (3)
  1. XALATAN [Suspect]
     Active Substance: LATANOPROST
     Dosage: ONE DROP EACH EYE, ONCE A DAY (AT NIGHT)
     Route: 047
     Dates: start: 2004
  2. ALDAZIDA [Concomitant]
     Dosage: 0.5 DF , ONCE A DAY IN THE MORNING
     Dates: start: 2004
  3. MANIVASC [Concomitant]
     Active Substance: MANIDIPINE HYDROCHLORIDE
     Indication: HYPERTENSION
     Dosage: 1DF, DAILY
     Dates: start: 2005

REACTIONS (1)
  - Hypoacusis [Unknown]

NARRATIVE: CASE EVENT DATE: 2008
